FAERS Safety Report 15485249 (Version 1)
Quarter: 2018Q4

REPORT INFORMATION
  Report Type: Spontaneous
  Country: US (occurrence: US)
  Receive Date: 20181010
  Receipt Date: 20181010
  Transmission Date: 20190205
  Serious: No
  Sender: FDA-Public Use
  Company Number: US-ROCHE-2183073

PATIENT
  Sex: Female
  Weight: 69.46 kg

DRUGS (2)
  1. ALECENSA [Suspect]
     Active Substance: ALECTINIB HYDROCHLORIDE
     Indication: LUNG NEOPLASM MALIGNANT
     Dosage: ONGOING: YES
     Route: 065
     Dates: start: 201711
  2. ZOMETA [Concomitant]
     Active Substance: ZOLEDRONIC ACID
     Indication: HYPERCALCAEMIA

REACTIONS (6)
  - Foreign body in respiratory tract [Unknown]
  - Cough [Unknown]
  - Product quality issue [Unknown]
  - Dry throat [Unknown]
  - Throat irritation [Unknown]
  - Dysphagia [Unknown]
